FAERS Safety Report 8349582-8 (Version None)
Quarter: 2012Q2

REPORT INFORMATION
  Report Type: 
  Country: None (occurrence: None)
  Receive Date: 20120510
  Receipt Date: 20120502
  Transmission Date: 20120825
  Serious: Yes (Hospitalization)
  Sender: FDA-Public Use
  Company Number: PHHY2012FR025543

PATIENT
  Sex: Female
  Weight: 68 kg

DRUGS (3)
  1. RASILEZ [Suspect]
     Dosage: 150 MG,
     Dates: start: 20120312, end: 20120320
  2. OLMESARTAN MEDOXOMIL AND HYDROCHLOROTHIZIDE [Concomitant]
  3. BISOPROLOL FUMARATE [Concomitant]
     Dosage: 5 MG,

REACTIONS (3)
  - LOSS OF CONSCIOUSNESS [None]
  - MALAISE [None]
  - ORTHOSTATIC HYPOTENSION [None]
